FAERS Safety Report 25048863 (Version 3)
Quarter: 2025Q2

REPORT INFORMATION
  Report Type: Spontaneous
  Country: US (occurrence: US)
  Receive Date: 20250307
  Receipt Date: 20250416
  Transmission Date: 20250716
  Serious: No
  Sender: PHARMACOSMOS
  Company Number: US-NEBO-687442

PATIENT
  Age: 30 Year
  Sex: Female
  Weight: 69 kg

DRUGS (2)
  1. MONOFERRIC [Suspect]
     Active Substance: FERRIC DERISOMALTOSE
     Indication: Anaemia
     Dates: start: 20250207, end: 20250207
  2. BENADRYL [Concomitant]
     Active Substance: DIPHENHYDRAMINE HYDROCHLORIDE
     Indication: Premedication

REACTIONS (2)
  - Restlessness [Recovered/Resolved]
  - Flushing [Recovered/Resolved]

NARRATIVE: CASE EVENT DATE: 20250207
